FAERS Safety Report 6634701-1 (Version None)
Quarter: 2010Q1

REPORT INFORMATION
  Report Type: 
  Country: None (occurrence: None)
  Receive Date: 20100225
  Receipt Date: 20090127
  Transmission Date: 20100710
  Serious: Yes (Other)
  Sender: FDA-Public Use
  Company Number: 610572

PATIENT
  Age: 18 Year
  Sex: Male
  Weight: 131.5 kg

DRUGS (1)
  1. ACCUTANE [Suspect]
     Indication: ACNE
     Dates: start: 19990106, end: 19990901

REACTIONS (4)
  - CONJUNCTIVITIS [None]
  - CROHN'S DISEASE [None]
  - DIVERTICULITIS [None]
  - INFLAMMATORY BOWEL DISEASE [None]
